FAERS Safety Report 11911984 (Version 2)
Quarter: 2016Q1

REPORT INFORMATION
  Report Type: Other
  Country: GB (occurrence: US)
  Receive Date: 20160112
  Receipt Date: 20160129
  Transmission Date: 20160526
  Serious: Yes (Disabling, Other)
  Sender: FDA-Public Use
  Company Number: GB-CLARIS PHARMASERVICES-1046430

PATIENT
  Age: 23 Year
  Sex: Female

DRUGS (1)
  1. CIPROFLOXACIN. [Suspect]
     Active Substance: CIPROFLOXACIN

REACTIONS (11)
  - Migraine [None]
  - Fatigue [None]
  - Dizziness [None]
  - Food intolerance [None]
  - Upper respiratory tract infection [None]
  - Nausea [None]
  - Tachycardia [None]
  - Sinusitis [None]
  - Diarrhoea [None]
  - Irritable bowel syndrome [None]
  - Cognitive disorder [None]
